FAERS Safety Report 11731243 (Version 1)
Quarter: 2015Q4

REPORT INFORMATION
  Report Type: Report from Study
  Country: US (occurrence: US)
  Receive Date: 20151112
  Receipt Date: 20151112
  Transmission Date: 20160304
  Serious: No
  Sender: FDA-Public Use
  Company Number: US-AMGEN-USASL2015115205

PATIENT
  Age: 48 Year
  Sex: Male

DRUGS (1)
  1. ENBREL [Suspect]
     Active Substance: ETANERCEPT
     Indication: PSORIASIS
     Dosage: UNK
     Route: 065
     Dates: start: 20121130

REACTIONS (6)
  - Frustration [Unknown]
  - Adverse event [Unknown]
  - Psoriasis [Unknown]
  - Stress [Unknown]
  - Feeling guilty [Unknown]
  - Feeling abnormal [Unknown]
